FAERS Safety Report 5415017-8 (Version None)
Quarter: 2007Q3

REPORT INFORMATION
  Report Type: 
  Country: None (occurrence: None)
  Receive Date: 20070813
  Receipt Date: 20070731
  Transmission Date: 20080115
  Serious: Yes (Other)
  Sender: FDA-Public Use
  Company Number: 2007US000920

PATIENT
  Age: 32 Year
  Sex: Female

DRUGS (2)
  1. PROGRAF [Suspect]
     Indication: VITILIGO
     Dosage: TOPICAL
     Route: 061
     Dates: start: 20060101, end: 20060101
  2. PROGRAF [Suspect]
     Indication: VITILIGO
     Dosage: TOPICAL
     Route: 061
     Dates: start: 20070401, end: 20070101

REACTIONS (2)
  - DRUG EXPOSURE DURING PREGNANCY [None]
  - PREGNANCY [None]
